FAERS Safety Report 9706961 (Version 1)
Quarter: 2013Q4

REPORT INFORMATION
  Report Type: Spontaneous
  Country: US (occurrence: US)
  Receive Date: 20131125
  Receipt Date: 20131125
  Transmission Date: 20140711
  Serious: No
  Sender: FDA-Public Use
  Company Number: US-PFIZER INC-2013332179

PATIENT
  Sex: Male

DRUGS (2)
  1. ATORVASTATIN CALCIUM [Suspect]
     Dosage: 20 MG, 1X/DAY
  2. ATORVASTATIN CALCIUM [Suspect]
     Dosage: 40 MG, 1X/DAY

REACTIONS (4)
  - Blood cholesterol increased [Unknown]
  - Pain [Unknown]
  - Pain in extremity [Unknown]
  - Drug intolerance [Unknown]
